FAERS Safety Report 9849343 (Version 1)
Quarter: 2014Q1

REPORT INFORMATION
  Report Type: Spontaneous
  Country: SE (occurrence: None)
  Receive Date: 20140124
  Receipt Date: 20140124
  Transmission Date: 20141002
  Serious: Yes (Other)
  Sender: FDA-Public Use
  Company Number: VAL_02945_2014

PATIENT
  Sex: Male

DRUGS (6)
  1. METOPROLOL TARTRATE [Suspect]
     Indication: MATERNAL EXPOSURE DURING PREGNANCY
     Dosage: DF
     Route: 064
  2. CICLOSPORIN (CICLOSPORIN) [Suspect]
     Indication: MATERNAL EXPOSURE DURING PREGNANCY
     Dosage: MATERNAL, DOSE 550 MG PER DAY TRANSPLACENTAL
     Route: 064
  3. PREDNISOLONE [Suspect]
     Indication: MATERNAL EXPOSURE DURING PREGNANCY
     Dosage: MATERNAL DOSE 5 MG PER DAY TRANSPLACENTAL
     Route: 064
  4. METHYLPREDISOLONE [Suspect]
     Indication: MATERNAL EXPOSURE DURING PREGNANCY
     Dosage: DF
     Route: 064
  5. FUROSEMIDE [Suspect]
     Indication: MATERNAL EXPOSURE DURING PREGNANCY
     Dosage: DF
     Route: 064
  6. HYDRALAZINE (HYDRALAZINE) [Suspect]
     Indication: MATERNAL EXPOSURE DURING PREGNANCY
     Dosage: DF
     Route: 064

REACTIONS (8)
  - Maternal drugs affecting foetus [None]
  - Caesarean section [None]
  - Premature baby [None]
  - Small for dates baby [None]
  - Blood creatinine increased [None]
  - Thrombocytopenia neonatal [None]
  - Growth retardation [None]
  - Low birth weight baby [None]
